FAERS Safety Report 17160695 (Version 1)
Quarter: 2019Q4

REPORT INFORMATION
  Report Type: Spontaneous
  Country: DE (occurrence: DE)
  Receive Date: 20191216
  Receipt Date: 20191216
  Transmission Date: 20200122
  Serious: Yes (Hospitalization)
  Sender: FDA-Public Use
  Company Number: DE-JNJFOC-20191211741

PATIENT
  Age: 59 Year
  Sex: Male

DRUGS (17)
  1. TRAZODONE [Suspect]
     Active Substance: TRAZODONE HYDROCHLORIDE
     Indication: DEPRESSIVE SYMPTOM
     Route: 065
     Dates: start: 20190415, end: 20190423
  2. SERTRALINE [Suspect]
     Active Substance: SERTRALINE HYDROCHLORIDE
     Indication: RESTLESSNESS
     Route: 065
     Dates: start: 20190403, end: 20190415
  3. TRAZODONE [Suspect]
     Active Substance: TRAZODONE HYDROCHLORIDE
     Indication: SLEEP DISORDER
  4. ZOPICLONE [Concomitant]
     Active Substance: ZOPICLONE
     Indication: DEPRESSIVE SYMPTOM
  5. ZOPICLONE [Concomitant]
     Active Substance: ZOPICLONE
     Indication: RESTLESSNESS
  6. RISPERIDONE. [Suspect]
     Active Substance: RISPERIDONE
     Indication: SLEEP DISORDER
  7. SERTRALINE [Suspect]
     Active Substance: SERTRALINE HYDROCHLORIDE
     Indication: SLEEP DISORDER
  8. RISPERIDONE. [Suspect]
     Active Substance: RISPERIDONE
     Indication: RESTLESSNESS
     Route: 065
     Dates: start: 20190318, end: 20190416
  9. PROMETHAZINE [Suspect]
     Active Substance: PROMETHAZINE HYDROCHLORIDE
     Indication: RESTLESSNESS
  10. PANTOPRAZOLE [Concomitant]
     Active Substance: PANTOPRAZOLE
     Dosage: SINCE MONTHS
  11. PROMETHAZINE [Suspect]
     Active Substance: PROMETHAZINE HYDROCHLORIDE
     Indication: DEPRESSIVE SYMPTOM
     Route: 065
     Dates: start: 20190403, end: 20190414
  12. SERTRALINE [Suspect]
     Active Substance: SERTRALINE HYDROCHLORIDE
     Indication: DEPRESSIVE SYMPTOM
     Route: 065
     Dates: start: 20190416, end: 20190426
  13. PROMETHAZINE [Suspect]
     Active Substance: PROMETHAZINE HYDROCHLORIDE
     Indication: SLEEP DISORDER
     Route: 065
     Dates: start: 20190415, end: 20190422
  14. TRAZODONE [Suspect]
     Active Substance: TRAZODONE HYDROCHLORIDE
     Indication: RESTLESSNESS
     Route: 065
     Dates: start: 20190402, end: 20190414
  15. BISOPROLOL [Concomitant]
     Active Substance: BISOPROLOL
     Dosage: SINCE MONTHS
  16. RISPERIDONE. [Suspect]
     Active Substance: RISPERIDONE
     Indication: DEPRESSIVE SYMPTOM
     Route: 065
     Dates: start: 20190417, end: 20190423
  17. ZOPICLONE [Concomitant]
     Active Substance: ZOPICLONE
     Indication: SLEEP DISORDER

REACTIONS (3)
  - Akathisia [Recovered/Resolved]
  - General symptom [Recovered/Resolved]
  - Psychomotor hyperactivity [Recovered/Resolved]

NARRATIVE: CASE EVENT DATE: 20190418
